FAERS Safety Report 19176221 (Version 2)
Quarter: 2021Q4

REPORT INFORMATION
  Report Type: Spontaneous
  Country: US (occurrence: US)
  Receive Date: 20210423
  Receipt Date: 20211102
  Transmission Date: 20220303
  Serious: No
  Sender: FDA-Public Use
  Company Number: US-SEATTLE GENETICS-2020SGN04361

PATIENT
  Sex: Female

DRUGS (5)
  1. TUKYSA [Suspect]
     Active Substance: TUCATINIB
     Indication: Breast cancer female
     Dosage: UNK
     Route: 048
  2. TUKYSA [Suspect]
     Active Substance: TUCATINIB
     Dosage: UNK
  3. TUKYSA [Suspect]
     Active Substance: TUCATINIB
     Dosage: UNK
  4. HERCEPTIN [Concomitant]
     Active Substance: TRASTUZUMAB
  5. CAPECITABINE [Concomitant]
     Active Substance: CAPECITABINE

REACTIONS (12)
  - Adverse drug reaction [Unknown]
  - Bone lesion [Unknown]
  - Product dose omission issue [Unknown]
  - Back pain [Unknown]
  - Pain in extremity [Unknown]
  - Trismus [Unknown]
  - Fatigue [Unknown]
  - Blood potassium decreased [Unknown]
  - Dehydration [Unknown]
  - Vomiting [Recovering/Resolving]
  - Diarrhoea [Recovering/Resolving]
  - Nausea [Not Recovered/Not Resolved]
